FAERS Safety Report 5367624-9 (Version None)
Quarter: 2007Q2

REPORT INFORMATION
  Report Type: 
  Country: None (occurrence: None)
  Receive Date: 20070622
  Receipt Date: 20070122
  Transmission Date: 20071010
  Serious: No
  Sender: FDA-Public Use
  Company Number: US-ASTRAZENECA-2007UW01292

PATIENT
  Age: 81 Year
  Sex: Male
  Weight: 73.5 kg

DRUGS (14)
  1. PULMICORT [Suspect]
     Indication: PULMONARY FIBROSIS
     Dosage: 2 INHALATIONS BID
     Route: 055
     Dates: start: 20070105, end: 20070118
  2. PULMICORT [Suspect]
     Indication: LUNG DISORDER
     Dosage: 2 INHALATIONS BID
     Route: 055
     Dates: start: 20070105, end: 20070118
  3. IMURAN [Concomitant]
  4. PROGRAF [Concomitant]
  5. STARLIX [Concomitant]
  6. DOXEPIN HCL [Concomitant]
  7. SPIRIVA [Concomitant]
  8. METOPROLOL SUCCINATE [Concomitant]
  9. FUROSEMIDE [Concomitant]
  10. ZYRTEC [Concomitant]
  11. PRILOSEC [Concomitant]
  12. ASPIRIN [Concomitant]
  13. CALCIUM WITH VITAMIN D [Concomitant]
  14. ASCORBIC ACID [Concomitant]

REACTIONS (2)
  - DYSPHONIA [None]
  - PRURITUS [None]
